FAERS Safety Report 6105844-6 (Version None)
Quarter: 2009Q1

REPORT INFORMATION
  Report Type: 
  Country: None (occurrence: None)
  Receive Date: 20090306
  Receipt Date: 20090223
  Transmission Date: 20090719
  Serious: Yes (Other)
  Sender: FDA-Public Use
  Company Number: US-PFIZER INC-2009176961

PATIENT
  Sex: Male
  Weight: 58.957 kg

DRUGS (2)
  1. NEURONTIN [Suspect]
     Dates: start: 20020101
  2. GABAPENTIN [Suspect]

REACTIONS (2)
  - SINUS HEADACHE [None]
  - THROAT TIGHTNESS [None]
